FAERS Safety Report 18144481 (Version 1)
Quarter: 2020Q3

REPORT INFORMATION
  Report Type: Spontaneous
  Country: PL (occurrence: PL)
  Receive Date: 20200813
  Receipt Date: 20200813
  Transmission Date: 20201103
  Serious: Yes (Other)
  Sender: FDA-Public Use
  Company Number: PL-BAYER-2020-139373

PATIENT
  Age: 31 Year
  Sex: Female
  Weight: 65 kg

DRUGS (1)
  1. MIRENA [Suspect]
     Active Substance: LEVONORGESTREL
     Indication: CONTRACEPTION
     Dosage: 20 ?G PER DAY CONTINUOUSLY
     Route: 015
     Dates: start: 20170607, end: 20200206

REACTIONS (6)
  - Abdominal pain lower [None]
  - Nausea [None]
  - Physical deconditioning [None]
  - Device dislocation [Recovered/Resolved]
  - Perineal pain [None]
  - Mental impairment [None]

NARRATIVE: CASE EVENT DATE: 202002
